FAERS Safety Report 8374769 (Version 3)
Quarter: 2013Q1

REPORT INFORMATION
  Report Type: Spontaneous
  Country: US (occurrence: US)
  Receive Date: 20120131
  Receipt Date: 20130206
  Transmission Date: 20140127
  Serious: Yes (Other)
  Sender: FDA-Public Use
  Company Number: US-B.I. PHARMACEUTICALS,INC./RIDGEFIELD-2010-BP-12667BP

PATIENT
  Sex: Female

DRUGS (8)
  1. SPIRIVA HANDIHALER [Suspect]
     Indication: CHRONIC OBSTRUCTIVE PULMONARY DISEASE
     Dosage: 18 MCG
     Route: 055
     Dates: start: 201010
  2. XANAX [Concomitant]
     Indication: PANIC ATTACK
     Dosage: 2 MG
     Route: 048
  3. XANAX [Concomitant]
     Indication: ANXIETY
  4. PROAIR [Concomitant]
     Indication: CHRONIC OBSTRUCTIVE PULMONARY DISEASE
     Route: 055
     Dates: start: 2011
  5. MULTIVITAMINS [Concomitant]
     Indication: PROPHYLAXIS
     Route: 048
     Dates: start: 1992
  6. CALCIUM [Concomitant]
     Indication: PROPHYLAXIS
     Dates: start: 1992
  7. VITAMIN B [Concomitant]
     Indication: PROPHYLAXIS
     Dates: start: 1992
  8. VITAMIN C [Concomitant]
     Indication: PROPHYLAXIS
     Dates: start: 1992

REACTIONS (5)
  - Vocal cord inflammation [Recovered/Resolved]
  - Dry mouth [Not Recovered/Not Resolved]
  - Dyspnoea [Not Recovered/Not Resolved]
  - Dysphonia [Not Recovered/Not Resolved]
  - Dry mouth [Not Recovered/Not Resolved]
